FAERS Safety Report 20291189 (Version 1)
Quarter: 2022Q1

REPORT INFORMATION
  Report Type: Spontaneous
  Country: US (occurrence: US)
  Receive Date: 20220104
  Receipt Date: 20220104
  Transmission Date: 20220424
  Serious: No
  Sender: FDA-Public Use
  Company Number: US-TEVA-2021-US-1987620

PATIENT
  Sex: Female

DRUGS (1)
  1. ESCITALOPRAM [Suspect]
     Active Substance: ESCITALOPRAM OXALATE
     Dosage: 1.5 PILLS A DAY
     Route: 065

REACTIONS (1)
  - Oligomenorrhoea [Recovering/Resolving]

NARRATIVE: CASE EVENT DATE: 20211206
